FAERS Safety Report 7040583-9 (Version None)
Quarter: 2010Q4

REPORT INFORMATION
  Report Type: 
  Country: None (occurrence: None)
  Receive Date: 20101006
  Receipt Date: 20100922
  Transmission Date: 20110411
  Serious: Yes (Death, Hospitalization)
  Sender: FDA-Public Use
  Company Number: TRP_07282_2010

PATIENT
  Sex: Male
  Weight: 76.2043 kg

DRUGS (6)
  1. INFERGEN [Suspect]
     Indication: HEPATITIS C
     Dosage: 15 UG QD, 15 MCG SUBCUTANEOUS
     Route: 058
     Dates: start: 20100610, end: 20100820
  2. RIBAVIRIN [Suspect]
     Indication: HEPATITIS C
     Dosage: 1000 MG, [600 MG IN AM, 400 MG IN PM] ORAL
     Route: 048
     Dates: start: 20100108, end: 20100820
  3. PEGASYS [Suspect]
     Indication: HEPATITIS C
     Dosage: DF
     Dates: start: 20100108, end: 20100610
  4. ZOLOFT [Concomitant]
  5. AMBIEN [Concomitant]
  6. LASIX [Concomitant]

REACTIONS (38)
  - ACTIVATED PARTIAL THROMBOPLASTIN TIME PROLONGED [None]
  - ACUTE RESPIRATORY DISTRESS SYNDROME [None]
  - ACUTE RESPIRATORY FAILURE [None]
  - ASCITES [None]
  - BLOOD ALBUMIN DECREASED [None]
  - BLOOD CALCIUM DECREASED [None]
  - BLOOD GLUCOSE INCREASED [None]
  - BLOOD PRESSURE SYSTOLIC INCREASED [None]
  - BLOOD SODIUM DECREASED [None]
  - BLOOD URINE PRESENT [None]
  - CARDIAC FAILURE CONGESTIVE [None]
  - COAGULOPATHY [None]
  - COLITIS [None]
  - CONJUNCTIVITIS [None]
  - CONTUSION [None]
  - DIARRHOEA [None]
  - ENTEROCOLITIS INFECTIOUS [None]
  - GASTRIC VARICES [None]
  - HEPATIC ENCEPHALOPATHY [None]
  - HILAR LYMPHADENOPATHY [None]
  - INJURY [None]
  - LIPASE INCREASED [None]
  - LOBAR PNEUMONIA [None]
  - METABOLIC ACIDOSIS [None]
  - NEPHROLITHIASIS [None]
  - NO THERAPEUTIC RESPONSE [None]
  - PHARYNGITIS [None]
  - PROTHROMBIN TIME PROLONGED [None]
  - PULMONARY MASS [None]
  - RENAL FAILURE ACUTE [None]
  - SEPSIS [None]
  - SPLENIC VARICES [None]
  - SPLENOMEGALY [None]
  - STOMATITIS [None]
  - THROMBOCYTOPENIA [None]
  - UVEITIS [None]
  - WHITE BLOOD CELL COUNT DECREASED [None]
  - WHITE BLOOD CELL COUNT INCREASED [None]
